FAERS Safety Report 23867823 (Version 1)
Quarter: 2024Q2

REPORT INFORMATION
  Report Type: Spontaneous
  Country: US (occurrence: None)
  Receive Date: 20240516
  Receipt Date: 20240516
  Transmission Date: 20240716
  Serious: Yes (Disabling)
  Sender: FDA-Public Use
  Company Number: None

PATIENT
  Age: 76 Year
  Sex: Female
  Weight: 53.55 kg

DRUGS (11)
  1. GEMTESA [Suspect]
     Active Substance: VIBEGRON
     Indication: Micturition urgency
     Dosage: 1 TABLET AT BEDTIME ORAL?
     Route: 048
     Dates: start: 20220606, end: 20240514
  2. GEMTESA [Suspect]
     Active Substance: VIBEGRON
     Indication: Pollakiuria
  3. GEMTESA [Suspect]
     Active Substance: VIBEGRON
     Indication: Urinary incontinence
  4. MELOXICAM [Concomitant]
     Active Substance: MELOXICAM
  5. ESTRADIOL TRANSDERMAL SYSTEM [Concomitant]
     Active Substance: ESTRADIOL
  6. FOSAMAX [Concomitant]
     Active Substance: ALENDRONATE SODIUM
  7. CALTRATE WITH VITAMIN D [Concomitant]
     Active Substance: CALCIUM CARBONATE\CHOLECALCIFEROL
  8. CALCIUM [Concomitant]
     Active Substance: CALCIUM
  9. VITAMIN D [Concomitant]
     Active Substance: VITAMIN D NOS
  10. ALEVE [Concomitant]
     Active Substance: NAPROXEN SODIUM
  11. TYLENOL [Concomitant]
     Active Substance: ACETAMINOPHEN

REACTIONS (3)
  - Back pain [None]
  - Kidney enlargement [None]
  - Urinary retention [None]

NARRATIVE: CASE EVENT DATE: 20240101
